FAERS Safety Report 7128446-1 (Version None)
Quarter: 2010Q4

REPORT INFORMATION
  Report Type: 
  Country: None (occurrence: None)
  Receive Date: 20101130
  Receipt Date: 20101117
  Transmission Date: 20110411
  Serious: Yes (Hospitalization)
  Sender: FDA-Public Use
  Company Number: JP-AMGEN-JPNNI2010006563

PATIENT

DRUGS (5)
  1. CINACALCET HYDROCHLORIDE [Suspect]
     Indication: HYPERPARATHYROIDISM SECONDARY
     Dosage: 25 MG, QD
     Route: 048
     Dates: start: 20090527, end: 20090626
  2. ONEALFA [Concomitant]
     Dosage: 0.5 A?G, QD
     Route: 048
  3. CALTAN [Concomitant]
     Dosage: 1500 MG, QD
     Route: 048
  4. RENAGEL                            /01459901/ [Concomitant]
     Dosage: 6 G, QD
     Route: 048
  5. FRANDOL [Concomitant]
     Dosage: 40 MG, QD
     Route: 062

REACTIONS (1)
  - CARDIAC FAILURE [None]
